FAERS Safety Report 4933287-7 (Version None)
Quarter: 2006Q1

REPORT INFORMATION
  Report Type: 
  Country: None (occurrence: None)
  Receive Date: 20060306
  Receipt Date: 20060210
  Transmission Date: 20060701
  Serious: Yes (Death, Hospitalization)
  Sender: FDA-Public Use
  Company Number: US-MERCK-0602USA03534

PATIENT
  Age: 84 Year
  Sex: Male
  Weight: 68 kg

DRUGS (12)
  1. VIOXX [Suspect]
     Indication: PAIN MANAGEMENT
     Route: 048
     Dates: start: 20000101, end: 20020115
  2. FLOMAX (MORNIFLUMATE) [Concomitant]
     Route: 065
  3. HYDROCODONE BITARTRATE [Concomitant]
     Route: 065
  4. TRAZODONE HYDROCHLORIDE [Concomitant]
     Route: 065
  5. ACCUPRIL [Concomitant]
     Route: 065
  6. LORAZEPAM [Concomitant]
     Route: 065
  7. PRILOSEC [Concomitant]
     Route: 065
  8. AMBIEN [Concomitant]
     Route: 065
  9. PAXIL [Concomitant]
     Route: 065
  10. SULFAMETHOXAZOLE [Concomitant]
     Route: 065
  11. ARICEPT [Concomitant]
     Route: 065
  12. ZESTORETIC [Concomitant]
     Route: 065

REACTIONS (10)
  - ACUTE MYOCARDIAL INFARCTION [None]
  - ANAEMIA [None]
  - BRONCHITIS [None]
  - CHRONIC OBSTRUCTIVE PULMONARY DISEASE [None]
  - CORONARY ARTERY DISEASE [None]
  - DEMENTIA [None]
  - DYSPNOEA [None]
  - FALL [None]
  - HYPOXIA [None]
  - MENTAL STATUS CHANGES [None]
